FAERS Safety Report 5364650-0 (Version None)
Quarter: 2007Q2

REPORT INFORMATION
  Report Type: 
  Country: None (occurrence: None)
  Receive Date: 20070621
  Receipt Date: 20070611
  Transmission Date: 20071010
  Serious: Yes (Life-Threatening, Hospitalization)
  Sender: FDA-Public Use
  Company Number: FR-JNJFOC-20070600673

PATIENT
  Age: 74 Year
  Sex: Male

DRUGS (8)
  1. REMICADE [Suspect]
     Route: 042
  2. REMICADE [Suspect]
     Route: 042
  3. REMICADE [Suspect]
     Indication: PSORIATIC ARTHROPATHY
     Route: 042
  4. COZAAR [Concomitant]
     Indication: HYPERTENSION
  5. PLAVIX [Concomitant]
     Indication: CAROTID ARTERY STENOSIS
  6. GLUCOPHAGE [Concomitant]
     Indication: DIABETES MELLITUS NON-INSULIN-DEPENDENT
  7. CARTEX [Concomitant]
     Indication: HYPERTENSION
  8. PARACETAMOL [Concomitant]

REACTIONS (1)
  - OESOPHAGEAL ADENOCARCINOMA [None]
